FAERS Safety Report 25123566 (Version 1)
Quarter: 2025Q1

REPORT INFORMATION
  Report Type: Spontaneous
  Country: US (occurrence: US)
  Receive Date: 20250326
  Receipt Date: 20250326
  Transmission Date: 20250409
  Serious: Yes (Life-Threatening, Hospitalization, Other)
  Sender: Steriscience PTE
  Company Number: US-STERISCIENCE B.V.-2025-ST-000532

PATIENT
  Age: 67 Year
  Sex: Male
  Weight: 112 kg

DRUGS (2)
  1. VANCOMYCIN [Suspect]
     Active Substance: VANCOMYCIN
     Indication: Antibiotic prophylaxis
     Route: 042
  2. SODIUM CHLORIDE [Concomitant]
     Active Substance: SODIUM CHLORIDE
     Indication: Product used for unknown indication
     Route: 065

REACTIONS (8)
  - Kounis syndrome [None]
  - Anaphylactic shock [None]
  - Circulatory collapse [None]
  - Lactic acidosis [None]
  - Myocardial ischaemia [None]
  - Hypokalaemia [None]
  - Respiratory acidosis [None]
  - Vasospasm [None]
